FAERS Safety Report 7749929-7 (Version None)
Quarter: 2011Q3

REPORT INFORMATION
  Report Type: 
  Country: None (occurrence: None)
  Receive Date: 20110914
  Receipt Date: 20110901
  Transmission Date: 20111222
  Serious: Yes (Other)
  Sender: FDA-Public Use
  Company Number: DE-US-EMD SERONO, INC.-7076071

PATIENT
  Sex: Female

DRUGS (3)
  1. REBIF [Suspect]
     Indication: MULTIPLE SCLEROSIS
  2. CIPROHEXAL [Concomitant]
     Indication: PNEUMONIA
     Route: 048
  3. CEFUROXIME [Concomitant]
     Indication: PNEUMONIA
     Route: 048

REACTIONS (2)
  - PNEUMONIA [None]
  - BRONCHITIS [None]
